FAERS Safety Report 8216562-2 (Version None)
Quarter: 2012Q1

REPORT INFORMATION
  Report Type: 
  Country: None (occurrence: None)
  Receive Date: 20120316
  Receipt Date: 20120312
  Transmission Date: 20120608
  Serious: Yes (Other)
  Sender: FDA-Public Use
  Company Number: PHEH2012US005656

PATIENT
  Sex: Male

DRUGS (14)
  1. EXELON [Suspect]
     Dosage: 9.5 MG ONCE DAILY
     Route: 062
  2. TRAMADOL HCL [Suspect]
  3. LISINOPRIL [Concomitant]
  4. DEOXYCYLICINE [Concomitant]
  5. RANITRAINIDINE [Concomitant]
  6. SYNTHROID [Concomitant]
  7. DIAZEPAM [Concomitant]
  8. CITALOPRAM HYDROBROMIDE [Concomitant]
  9. AMIODARONE HYDROCHLORIDE [Concomitant]
  10. AMOXICILLIN AND CLAVULANATE POTASSIUM [Concomitant]
  11. METOPROLOL SUCCINATE [Concomitant]
  12. LOVASTATIN [Concomitant]
  13. AMBIEN [Concomitant]
  14. ASPIRIN [Concomitant]
     Dosage: ONCE A DAY

REACTIONS (1)
  - PNEUMONIA [None]
